FAERS Safety Report 8615817-7 (Version None)
Quarter: 2012Q3

REPORT INFORMATION
  Report Type: 
  Country: None (occurrence: None)
  Receive Date: 20120823
  Receipt Date: 20120816
  Transmission Date: 20120928
  Serious: Yes (Hospitalization, Other)
  Sender: FDA-Public Use
  Company Number: BR-ROCHE-1103189

PATIENT
  Sex: Female
  Weight: 66 kg

DRUGS (11)
  1. GRAVIOLA [Concomitant]
  2. NAPROXEN [Concomitant]
  3. ALOE VERA [Concomitant]
  4. MAGNESIUM CHLORIDE [Concomitant]
  5. ALPRAZOLAM [Concomitant]
  6. LOVAZA [Concomitant]
  7. PANTOPRAZOLE [Concomitant]
  8. ROACTEMRA [Suspect]
     Indication: RHEUMATOID ARTHRITIS
     Dates: start: 20120712
  9. MABTHERA [Suspect]
     Indication: RHEUMATOID ARTHRITIS
  10. LEVOTHYROXINE SODIUM [Concomitant]
  11. LOSARTAN POTASSIUM [Concomitant]

REACTIONS (6)
  - DRUG INEFFECTIVE [None]
  - PAIN [None]
  - DUODENAL NEOPLASM [None]
  - ARTHROPATHY [None]
  - SPINAL DISORDER [None]
  - MUSCULOSKELETAL DISORDER [None]
